FAERS Safety Report 5974944-3 (Version None)
Quarter: 2008Q4

REPORT INFORMATION
  Report Type: 
  Country: None (occurrence: None)
  Receive Date: 20081202
  Receipt Date: 20081124
  Transmission Date: 20090506
  Serious: Yes (Hospitalization, Other)
  Sender: FDA-Public Use
  Company Number: GB-RANBAXY-2008RR-19537

PATIENT
  Age: 43 Year
  Sex: Female

DRUGS (5)
  1. FLUOXETINE [Suspect]
     Indication: DEPRESSION
     Dosage: 600 MG, UNK
     Route: 048
  2. COPAXONE [Suspect]
     Indication: MULTIPLE SCLEROSIS
     Dosage: 20 MG, QD
     Route: 058
  3. GABAPENTIN [Suspect]
     Indication: PAIN
     Dosage: 300 MG, TID
     Route: 048
  4. ACETAMINOPHEN [Suspect]
     Indication: PAIN
     Dosage: 10 G, UNK
     Route: 048
  5. OXYBUTYNIN CHLORIDE [Concomitant]
     Route: 048

REACTIONS (2)
  - OVERDOSE [None]
  - SUICIDE ATTEMPT [None]
